FAERS Safety Report 9045668 (Version 1)
Quarter: 2013Q1

REPORT INFORMATION
  Report Type: Report from Study
  Country: US (occurrence: US)
  Receive Date: 20130131
  Receipt Date: 20130131
  Transmission Date: 20140127
  Serious: No
  Sender: FDA-Public Use
  Company Number: US-ABBOTT-12P-163-1009128-00

PATIENT
  Age: 39 None
  Sex: Male
  Weight: 90.8 kg

DRUGS (15)
  1. HUMIRA [Suspect]
     Indication: PSORIASIS
     Dates: start: 2009
  2. HUMIRA [Suspect]
     Indication: PSORIASIS
     Route: 058
     Dates: start: 2010
  3. LEVOTHYROXINE [Suspect]
     Indication: HYPOTHYROIDISM
     Dates: start: 20121103
  4. LEXAPRO [Concomitant]
     Indication: DEPRESSION
  5. CLONOPIN [Concomitant]
     Indication: DEPRESSION
  6. CLONOPIN [Concomitant]
     Indication: ANXIETY
  7. DOXAZOSIN [Concomitant]
     Indication: URINARY RETENTION
  8. DOXAZOSIN [Concomitant]
     Indication: HEART RATE
  9. SIMVASTATIN [Concomitant]
     Indication: BLOOD CHOLESTEROL INCREASED
  10. ULORIC [Concomitant]
     Indication: GOUT
  11. MICARDIS [Concomitant]
     Indication: HYPERTENSION
  12. OLUX [Concomitant]
     Indication: PSORIASIS
  13. VITAMIN D NOS [Concomitant]
     Indication: VITAMIN SUPPLEMENTATION
  14. COLACE [Concomitant]
     Indication: CONSTIPATION
  15. FISH OIL [Concomitant]
     Indication: SUPPLEMENTATION THERAPY

REACTIONS (4)
  - Blood thyroid stimulating hormone increased [Not Recovered/Not Resolved]
  - Pruritus generalised [Recovering/Resolving]
  - Psoriasis [Not Recovered/Not Resolved]
  - Psoriasis [Not Recovered/Not Resolved]
